FAERS Safety Report 8233201-5 (Version None)
Quarter: 2012Q1

REPORT INFORMATION
  Report Type: 
  Country: None (occurrence: None)
  Receive Date: 20120326
  Receipt Date: 20120319
  Transmission Date: 20120608
  Serious: No
  Sender: FDA-Public Use
  Company Number: US-PFIZER INC-2012054072

PATIENT
  Age: 25 Year
  Sex: Female

DRUGS (4)
  1. ACYCLOVIR [Concomitant]
     Dosage: UNK
     Route: 048
  2. IMPLANON [Concomitant]
     Indication: CONTRACEPTION
     Dosage: UNK
  3. PRISTIQ [Suspect]
     Indication: DEPRESSION
     Dosage: 50MG DAILY
     Route: 048
     Dates: start: 20120116, end: 20120224
  4. OPANA [Concomitant]
     Indication: BACK PAIN
     Dosage: UNK
     Route: 048

REACTIONS (4)
  - TACHYCARDIA [None]
  - HYPERTENSION [None]
  - DYSARTHRIA [None]
  - DISORIENTATION [None]
